FAERS Safety Report 10185276 (Version 1)
Quarter: 2014Q2

REPORT INFORMATION
  Report Type: Spontaneous
  Country: US (occurrence: US)
  Receive Date: 20140521
  Receipt Date: 20140521
  Transmission Date: 20141212
  Serious: No
  Sender: FDA-Public Use
  Company Number: US-PFIZER INC-2014135698

PATIENT
  Age: 78 Year
  Sex: Male
  Weight: 99.77 kg

DRUGS (2)
  1. TIKOSYN [Suspect]
     Indication: ATRIAL FIBRILLATION
     Dosage: 500 UG, 2X/DAY
     Route: 048
  2. TIKOSYN [Suspect]
     Dosage: 500 UG, 2X/DAY
     Route: 048

REACTIONS (1)
  - Drug ineffective [Unknown]
